FAERS Safety Report 6309649-2 (Version None)
Quarter: 2009Q3

REPORT INFORMATION
  Report Type: 
  Country: None (occurrence: None)
  Receive Date: 20090814
  Receipt Date: 20090810
  Transmission Date: 20100115
  Serious: Yes (Death, Disabling)
  Sender: FDA-Public Use
  Company Number: BR-ROCHE-638615

PATIENT
  Sex: Female

DRUGS (4)
  1. MYCOPHENOLATE MOFETIL [Suspect]
     Route: 048
     Dates: start: 20090417
  2. BELATACEPT [Suspect]
     Indication: LIVER TRANSPLANT
     Dosage: DOSE REGIMEN BLINDED
     Route: 042
     Dates: start: 20090416
  3. BLINDED BASILIXIMAB [Suspect]
     Indication: LIVER TRANSPLANT
     Route: 042
     Dates: start: 20090416, end: 20090420
  4. OMEPRAZOLE [Concomitant]
     Dates: start: 20090417

REACTIONS (3)
  - DELIRIUM [None]
  - MULTI-ORGAN FAILURE [None]
  - SEPSIS [None]
